FAERS Safety Report 6965681-7 (Version None)
Quarter: 2010Q3

REPORT INFORMATION
  Report Type: 
  Country: None (occurrence: None)
  Receive Date: 20100901
  Receipt Date: 20100823
  Transmission Date: 20110219
  Serious: Yes (Hospitalization, Other)
  Sender: FDA-Public Use
  Company Number: 2010US003414

PATIENT
  Age: 41 Year
  Sex: Female
  Weight: 66 kg

DRUGS (11)
  1. PROGRAF [Suspect]
     Indication: RENAL TRANSPLANT
     Dosage: 2 MG IN THE AM AND 1 MG IN THE PM, ORAL
     Route: 048
  2. CELLCEPT [Concomitant]
  3. NORCO (HYDROCODONE BITARTRATE, PARACETAMOL) TABLET [Concomitant]
  4. ATENOLOL [Concomitant]
  5. PREDNISONE TAB [Concomitant]
  6. BACTRIM (SULFAMETHOXAZOLE) TABLET [Concomitant]
  7. XANAX [Concomitant]
  8. FLUDROCORTISONE ACETATE [Concomitant]
  9. NORVASC [Concomitant]
  10. FLUOCETINE (FLUOXETINE) [Concomitant]
  11. PEPCO (FAMOTIDINE) [Concomitant]

REACTIONS (4)
  - CLOSTRIDIAL INFECTION [None]
  - GALLBLADDER OPERATION [None]
  - POSTOPERATIVE WOUND COMPLICATION [None]
  - WOUND INFECTION [None]
